FAERS Safety Report 26110568 (Version 2)
Quarter: 2025Q4

REPORT INFORMATION
  Report Type: Spontaneous
  Country: US (occurrence: US)
  Receive Date: 20251202
  Receipt Date: 20251231
  Transmission Date: 20260117
  Serious: No
  Sender: TOLMAR
  Company Number: US-Tolmar-TLM-2025-08916

PATIENT

DRUGS (3)
  1. ELIGARD [Suspect]
     Active Substance: LEUPROLIDE ACETATE
     Indication: Prostate cancer
     Dosage: BOX: LOT 15371CUS EXP 12/2026?SN: 5974319704259?GTIN: 00362935461500?SYRINGE A: LOT 15371AUS EXP 12/
     Dates: start: 20251120
  2. ELIGARD [Suspect]
     Active Substance: LEUPROLIDE ACETATE
     Dosage: REPLACEMENT DOSE
  3. DEVICE [Suspect]
     Active Substance: DEVICE
     Indication: Prostate cancer
     Dosage: BOX: LOT 15371CUS EXP 12/2026?SN: 5974319704259?GTIN: 00362935461500?SYRINGE A: LOT 15371AUS EXP 12/

REACTIONS (5)
  - Wrong technique in product usage process [Unknown]
  - Intercepted product preparation error [Unknown]
  - Product preparation error [Unknown]
  - Device connection issue [Unknown]
  - Product quality issue [Unknown]

NARRATIVE: CASE EVENT DATE: 20251120
